FAERS Safety Report 8912899 (Version 7)
Quarter: 2013Q3

REPORT INFORMATION
  Report Type: Spontaneous
  Country: US (occurrence: US)
  Receive Date: 20121116
  Receipt Date: 20130722
  Transmission Date: 20140515
  Serious: Yes (Hospitalization)
  Sender: FDA-Public Use
  Company Number: US-GLAXOSMITHKLINE-A1001106A

PATIENT
  Age: 72 Year
  Sex: Female

DRUGS (3)
  1. FLOLAN [Suspect]
     Indication: PULMONARY ARTERIAL HYPERTENSION
     Dosage: 15.2NGKM CONTINUOUS
     Route: 042
     Dates: start: 20040416
  2. COUMADIN [Concomitant]
  3. REVATIO [Concomitant]

REACTIONS (13)
  - Compartment syndrome [Unknown]
  - Loss of consciousness [Unknown]
  - Fluid overload [Recovered/Resolved]
  - Contusion [Unknown]
  - Joint swelling [Unknown]
  - Fall [Unknown]
  - Syncope [Unknown]
  - Malaise [Unknown]
  - Hyperhidrosis [Unknown]
  - Dyspnoea [Unknown]
  - Device failure [Recovered/Resolved]
  - Headache [Unknown]
  - Adverse event [Unknown]
